FAERS Safety Report 21253907 (Version 2)
Quarter: 2022Q4

REPORT INFORMATION
  Report Type: Report from Study
  Country: US (occurrence: None)
  Receive Date: 20220825
  Receipt Date: 20221111
  Transmission Date: 20230113
  Serious: Yes (Other)
  Sender: FDA-Public Use
  Company Number: US-Merck Healthcare KGaA-9344969

PATIENT
  Age: 67 Year
  Sex: Female
  Weight: 58 kg

DRUGS (4)
  1. REBIF [Suspect]
     Active Substance: INTERFERON BETA-1A
     Indication: Multiple sclerosis
     Route: 058
     Dates: start: 2004
  2. REBIF [Suspect]
     Active Substance: INTERFERON BETA-1A
     Dosage: DOSE REDUCED
     Route: 058
  3. REBIF [Suspect]
     Active Substance: INTERFERON BETA-1A
     Dosage: BACK ON FULL DOSE
     Route: 058
  4. CALCIUM CITRATE [Concomitant]
     Active Substance: CALCIUM CITRATE
     Indication: Product used for unknown indication
     Dosage: TYPE: MAINTENANCE
     Route: 048

REACTIONS (6)
  - Squamous cell carcinoma [Recovering/Resolving]
  - Cutaneous calcification [Recovering/Resolving]
  - Basal cell carcinoma [Unknown]
  - Impaired healing [Not Recovered/Not Resolved]
  - Vitamin D deficiency [Unknown]
  - Wrong technique in product usage process [Unknown]
